FAERS Safety Report 21839220 (Version 1)
Quarter: 2023Q1

REPORT INFORMATION
  Report Type: Spontaneous
  Country: US (occurrence: None)
  Receive Date: 20230107
  Receipt Date: 20230107
  Transmission Date: 20230418
  Serious: Yes (Life-Threatening, Hospitalization)
  Sender: FDA-Public Use
  Company Number: None

PATIENT
  Age: 72 Year
  Sex: Male

DRUGS (1)
  1. FUROSEMIDE [Suspect]
     Active Substance: FUROSEMIDE
     Indication: Hepatic cirrhosis
     Dosage: FREQUENCY : BEFORE MEALS;?
     Route: 048
     Dates: start: 20220628

REACTIONS (2)
  - Hyponatraemia [None]
  - Aphasia [None]

NARRATIVE: CASE EVENT DATE: 20221013
